FAERS Safety Report 7092450-2 (Version None)
Quarter: 2010Q4

REPORT INFORMATION
  Report Type: 
  Country: None (occurrence: None)
  Receive Date: 20101108
  Receipt Date: 20101108
  Transmission Date: 20110411
  Serious: No
  Sender: FDA-Public Use
  Company Number: None

PATIENT
  Sex: Male

DRUGS (2)
  1. NUCYNTA [Suspect]
     Indication: JOINT DISLOCATION
     Dosage: 50 MG Q8H ORAL
     Route: 048
     Dates: start: 20101020, end: 20101030
  2. NUCYNTA [Suspect]
     Indication: LUMBAR SPINAL STENOSIS
     Dosage: 50 MG Q8H ORAL
     Route: 048
     Dates: start: 20101020, end: 20101030

REACTIONS (5)
  - COLD SWEAT [None]
  - DIZZINESS [None]
  - DRUG INEFFECTIVE [None]
  - MIGRAINE [None]
  - NAUSEA [None]
